FAERS Safety Report 8373674-0 (Version None)
Quarter: 2012Q2

REPORT INFORMATION
  Report Type: 
  Country: None (occurrence: None)
  Receive Date: 20120517
  Receipt Date: 20120515
  Transmission Date: 20120825
  Serious: Yes (Hospitalization, Other)
  Sender: FDA-Public Use
  Company Number: ADR-2011-10029

PATIENT
  Age: 69 Year
  Sex: Female

DRUGS (6)
  1. BACLOFEN [Suspect]
     Indication: MUSCLE SPASTICITY
     Dosage: DAILY, INTRATH
     Route: 037
     Dates: start: 20110106
  2. MAGMITT [Concomitant]
  3. LIORESAL [Concomitant]
  4. LEVOFLOXACIN [Concomitant]
  5. PURSENNID [Concomitant]
  6. RISUMIC [Concomitant]

REACTIONS (6)
  - DEPRESSED LEVEL OF CONSCIOUSNESS [None]
  - ANAESTHETIC COMPLICATION PULMONARY [None]
  - ATELECTASIS [None]
  - PNEUMONIA ASPIRATION [None]
  - PNEUMONITIS [None]
  - POSTOPERATIVE WOUND INFECTION [None]
